FAERS Safety Report 18068370 (Version 1)
Quarter: 2020Q3

REPORT INFORMATION
  Report Type: Spontaneous
  Country: CA (occurrence: CA)
  Receive Date: 20200724
  Receipt Date: 20200724
  Transmission Date: 20201103
  Serious: Yes (Other)
  Sender: FDA-Public Use
  Company Number: CA-009507513-2007CAN008487

PATIENT
  Age: 78 Year
  Sex: Female

DRUGS (14)
  1. KEYTRUDA [Suspect]
     Active Substance: PEMBROLIZUMAB
     Indication: NEOPLASM MALIGNANT
     Route: 065
  2. HYDROCORTISONE. [Suspect]
     Active Substance: HYDROCORTISONE
     Dosage: DOSAGE FORM NOT SPECIFIED
     Route: 065
  3. SODIUM CHLORIDE. [Suspect]
     Active Substance: SODIUM CHLORIDE
     Dosage: DOSAGE FORM NOT SPECIFIED
     Route: 065
  4. PANTOPRAZOLE [Concomitant]
     Active Substance: PANTOPRAZOLE
     Dosage: DOSAGE FORM NOT SPECIFIED
     Route: 065
  5. XYLOCAINE [Concomitant]
     Active Substance: LIDOCAINE HYDROCHLORIDE
     Route: 065
  6. ZOPICLONE [Concomitant]
     Active Substance: ZOPICLONE
     Route: 065
  7. TRELEGY ELLIPTA [Concomitant]
     Active Substance: FLUTICASONE FUROATE\UMECLIDINIUM BROMIDE\VILANTEROL TRIFENATATE
     Route: 065
  8. GLYCERIN. [Suspect]
     Active Substance: GLYCERIN
     Dosage: DOSAGE FORM NOT SPECIFIED
     Route: 065
  9. CALCIUM (UNSPECIFIED) [Concomitant]
     Active Substance: CALCIUM
     Dosage: DOSAGE FORM NOT SPECIFIED
     Route: 065
  10. RISEDRONATE SODIUM. [Concomitant]
     Active Substance: RISEDRONATE SODIUM
     Dosage: DOSAGE FORM NOT SPECIFIED
     Route: 065
  11. VITAMIN D (UNSPECIFIED) [Concomitant]
     Active Substance: VITAMIN D NOS
     Dosage: DOSAGE FORM NOT SPECIFIED
  12. LATANOPROST. [Concomitant]
     Active Substance: LATANOPROST
     Dosage: DOSAGE FORM SOLUTION OPHTHALMIC
     Route: 065
  13. VENTOLIN [Concomitant]
     Active Substance: ALBUTEROL SULFATE
     Dosage: DOSAGE FORM NOT SPECIFIED
     Route: 065
  14. NYSTATIN. [Suspect]
     Active Substance: NYSTATIN
     Dosage: 100000 UNIT/ML USP
     Route: 065

REACTIONS (3)
  - Erythema [Unknown]
  - Hypertension [Unknown]
  - Dyspnoea [Unknown]
